FAERS Safety Report 9836624 (Version 1)
Quarter: 2013Q4

REPORT INFORMATION
  Report Type: Spontaneous
  Country: US (occurrence: None)
  Receive Date: 20131120
  Receipt Date: 20131120
  Transmission Date: 20140711
  Serious: No
  Sender: FDA-Public Use
  Company Number: 1000049611

PATIENT
  Age: 45 Year
  Sex: Male

DRUGS (4)
  1. VIIBRYD [Suspect]
     Dosage: 10MG (10MG, 1 IN 1 D) ORAL
     Route: 048
     Dates: start: 201309, end: 201309
  2. LOSARTAN (LOSARTAN) (LOSARTAN) [Concomitant]
  3. INSULIN (INSULIN) (INSULIN) [Concomitant]
  4. AMBIEN (ZOLPIDEM TARTRATE) (ZOLPIDEM TARTRATE) [Concomitant]

REACTIONS (1)
  - Blister [None]
